FAERS Safety Report 17782424 (Version 2)
Quarter: 2020Q3

REPORT INFORMATION
  Report Type: Spontaneous
  Country: FR (occurrence: FR)
  Receive Date: 20200513
  Receipt Date: 20200821
  Transmission Date: 20201102
  Serious: Yes (Death)
  Sender: FDA-Public Use
  Company Number: NVSC2020FR130264

PATIENT
  Age: 33 Year
  Sex: Male

DRUGS (2)
  1. IBUPROFEN. [Suspect]
     Active Substance: IBUPROFEN
     Indication: INFLUENZA LIKE ILLNESS
     Dosage: UNK (INCONNUE)
     Route: 048
     Dates: start: 20191216
  2. PARACETAMOL [Concomitant]
     Active Substance: ACETAMINOPHEN
     Indication: INFLUENZA LIKE ILLNESS
     Dosage: UNK
     Route: 048
     Dates: start: 20191216

REACTIONS (3)
  - Streptococcal sepsis [Fatal]
  - Septic shock [Fatal]
  - Myocarditis [Fatal]

NARRATIVE: CASE EVENT DATE: 20191218
